FAERS Safety Report 18184889 (Version 1)
Quarter: 2020Q3

REPORT INFORMATION
  Report Type: Spontaneous
  Country: IT (occurrence: IT)
  Receive Date: 20200824
  Receipt Date: 20200824
  Transmission Date: 20201103
  Serious: Yes (Other)
  Sender: FDA-Public Use
  Company Number: IT-LUPIN PHARMACEUTICALS INC.-2020-04998

PATIENT
  Age: 66 Year
  Sex: Male

DRUGS (5)
  1. LEVOTHYROXINE. [Suspect]
     Active Substance: LEVOTHYROXINE
     Dosage: 75 MICROGRAM, QD
     Route: 065
  2. LEVOTHYROXINE. [Suspect]
     Active Substance: LEVOTHYROXINE
     Dosage: 100 MICROGRAM, QD
     Route: 065
  3. LEVOTHYROXINE. [Suspect]
     Active Substance: LEVOTHYROXINE
     Indication: POST PROCEDURAL HYPOTHYROIDISM
     Dosage: 125 MICROGRAM, QD
     Route: 065
  4. PROPAFENONE. [Concomitant]
     Active Substance: PROPAFENONE
     Indication: POST PROCEDURAL HYPOTHYROIDISM
     Dosage: 325 MILLIGRAM, BID
     Route: 065
  5. PANTOPRAZOLE [Concomitant]
     Active Substance: PANTOPRAZOLE
     Indication: POST PROCEDURAL HYPOTHYROIDISM
     Dosage: 20 MILLIGRAM, QD
     Route: 065

REACTIONS (1)
  - Hyperthyroidism [Recovering/Resolving]
